FAERS Safety Report 8299370-6 (Version None)
Quarter: 2012Q2

REPORT INFORMATION
  Report Type: 
  Country: None (occurrence: None)
  Receive Date: 20120417
  Receipt Date: 20120402
  Transmission Date: 20120825
  Serious: Yes (Hospitalization, Other)
  Sender: FDA-Public Use
  Company Number: AUR-APL-2012-00746

PATIENT
  Age: 52 Year
  Sex: Female

DRUGS (8)
  1. CLOZAPINE [Suspect]
     Indication: PRODUCT USED FOR UNKNOWN INDICATION
     Dosage: ORAL; ORAL
     Route: 048
     Dates: start: 20110204, end: 20111213
  2. CLOZAPINE [Suspect]
     Indication: PRODUCT USED FOR UNKNOWN INDICATION
     Dosage: ORAL; ORAL
     Route: 048
     Dates: start: 20120122
  3. PAROXETINE HCL [Suspect]
     Indication: PRODUCT USED FOR UNKNOWN INDICATION
  4. FOLIC ACID [Concomitant]
  5. VALPROATE SODIUM [Suspect]
     Indication: BIPOLAR DISORDER
     Dosage: 600 MG (300 MG, 2 IN 1 D),ORAL
     Route: 048
  6. HYDROXYCHLOROQUINE SULFATE [Suspect]
     Indication: RHEUMATOID ARTHRITIS
     Dosage: 200 MG (200 MG, 1 IN 1 D), ORAL
     Route: 048
  7. ACETAMINOPHEN [Concomitant]
  8. LORAZEPAM [Suspect]
     Indication: PRODUCT USED FOR UNKNOWN INDICATION
     Dosage: 2 MG (1 MG, 2 IN 1 D),ORAL
     Route: 048

REACTIONS (10)
  - TOXICITY TO VARIOUS AGENTS [None]
  - NEUTROPENIA [None]
  - WHITE BLOOD CELL COUNT DECREASED [None]
  - MYOCLONUS [None]
  - DYSTONIA [None]
  - ATONIC SEIZURES [None]
  - HAEMOGLOBIN DECREASED [None]
  - LYMPHOCYTE COUNT DECREASED [None]
  - DYSARTHRIA [None]
  - POTENTIATING DRUG INTERACTION [None]
